FAERS Safety Report 25318429 (Version 1)
Quarter: 2025Q2

REPORT INFORMATION
  Report Type: Spontaneous
  Country: US (occurrence: US)
  Receive Date: 20250515
  Receipt Date: 20250515
  Transmission Date: 20250717
  Serious: No
  Sender: BAYER HEALTHCARE LLC
  Company Number: US-BAYER-2025A065365

PATIENT
  Age: 79 Year
  Sex: Female

DRUGS (2)
  1. MIRALAX [Suspect]
     Active Substance: POLYETHYLENE GLYCOL 3350
     Indication: Prophylaxis
     Route: 048
     Dates: start: 20241116
  2. MIRALAX [Suspect]
     Active Substance: POLYETHYLENE GLYCOL 3350
     Indication: Colonoscopy

REACTIONS (2)
  - Product use in unapproved indication [Recovering/Resolving]
  - Extra dose administered [Recovering/Resolving]

NARRATIVE: CASE EVENT DATE: 20250512
